FAERS Safety Report 8735134 (Version 2)
Quarter: 2012Q4

REPORT INFORMATION
  Report Type: 
  Country: DE (occurrence: DE)
  Receive Date: 20120821
  Receipt Date: 20120927
  Transmission Date: 20130627
  Serious: Yes (Other)
  Sender: FDA-Public Use
  Company Number: DE-ELI_LILLY_AND_COMPANY-DE201207001004

PATIENT
  Age: 36 Year
  Sex: Female
  Weight: 89 kg

DRUGS (2)
  1. BYDUREON [Suspect]
     Indication: TYPE 1 DIABETES MELLITUS
     Dosage: 2 mg, weekly (1/W)
     Route: 058
     Dates: start: 20120119, end: 20120628
  2. METFORMIN [Concomitant]

REACTIONS (2)
  - Abortion spontaneous [Recovered/Resolved]
  - Exposure during pregnancy [Recovered/Resolved]
